FAERS Safety Report 7988694 (Version 2)
Quarter: 2012Q4

REPORT INFORMATION
  Report Type: 
  Country: CA (occurrence: CA)
  Receive Date: 20110613
  Receipt Date: 20121109
  Transmission Date: 20130627
  Serious: Yes (Other)
  Sender: FDA-Public Use
  Company Number: PHHO2005CA12911

PATIENT
  Sex: Female

DRUGS (3)
  1. SANDOSTATIN LAR (PATIENT BASIS) [Suspect]
     Indication: CARCINOID TUMOUR
     Dosage: 20mg, every 4 weeks
     Dates: start: 20040201
  2. VITAMIN B12 [Concomitant]
  3. PHENAZO [Concomitant]
     Indication: PAIN

REACTIONS (11)
  - Urinary tract infection [Unknown]
  - Cystitis [Unknown]
  - Hypotension [Unknown]
  - Palpitations [Unknown]
  - Arthralgia [Unknown]
  - Flushing [Unknown]
  - Diarrhoea [Unknown]
  - Nausea [Unknown]
  - Headache [Unknown]
  - Dizziness [Unknown]
  - Tachycardia [Unknown]
